FAERS Safety Report 9498381 (Version 3)
Quarter: 2013Q3

REPORT INFORMATION
  Report Type: Spontaneous
  Country: SE (occurrence: SE)
  Receive Date: 20130904
  Receipt Date: 20130923
  Transmission Date: 20140515
  Serious: Yes (Hospitalization, Other)
  Sender: FDA-Public Use
  Company Number: SE-ELI_LILLY_AND_COMPANY-SE201306008911

PATIENT
  Age: 23 Year
  Sex: Female

DRUGS (5)
  1. ZYPREXA [Suspect]
     Dosage: 5 MG, UNKNOWN
  2. ZYPREXA [Suspect]
     Dosage: 150 MG, SINGLE
  3. LYRICA [Suspect]
     Dosage: 75 MG, UNKNOWN
  4. LYRICA [Suspect]
     Dosage: 1500 MG, SINGLE
  5. IMOVANE [Suspect]
     Dosage: 37.5 MG, SINGLE

REACTIONS (7)
  - Tachycardia [Unknown]
  - Toxicity to various agents [Unknown]
  - Muscle contractions involuntary [Unknown]
  - Agitation [Unknown]
  - Anxiety [Unknown]
  - Fatigue [Unknown]
  - Overdose [Unknown]
